FAERS Safety Report 8402501-8 (Version None)
Quarter: 2012Q2

REPORT INFORMATION
  Report Type: 
  Country: None (occurrence: None)
  Receive Date: 20120601
  Receipt Date: 20120524
  Transmission Date: 20120825
  Serious: Yes (Other)
  Sender: FDA-Public Use
  Company Number: FR-SANOFI-AVENTIS-2012SA038079

PATIENT

DRUGS (3)
  1. LOCAL ANESTHETIC [Concomitant]
  2. ANTIBIOTICS [Concomitant]
     Indication: PROPHYLAXIS
     Route: 042
  3. CLOPIDOGREL BISULFATE [Suspect]
     Indication: ANTIPLATELET THERAPY
     Route: 065

REACTIONS (2)
  - PERICARDIAL EFFUSION [None]
  - CARDIAC TAMPONADE [None]
